FAERS Safety Report 9928308 (Version 1)
Quarter: 2014Q1

REPORT INFORMATION
  Report Type: Spontaneous
  Country: US (occurrence: None)
  Receive Date: 20140226
  Receipt Date: 20140226
  Transmission Date: 20141002
  Serious: Yes (Hospitalization, Disabling)
  Sender: FDA-Public Use
  Company Number: None

PATIENT
  Age: 87 Year
  Sex: Female
  Weight: 65 kg

DRUGS (4)
  1. ABILIFY [Suspect]
     Indication: ANXIETY
     Dosage: 2 PILLS ONCE DAILY TAKEN BY MOUTH
     Route: 048
  2. ABILIFY [Suspect]
     Indication: DEMENTIA
     Dosage: 2 PILLS ONCE DAILY TAKEN BY MOUTH
     Route: 048
  3. ABILIFY [Suspect]
     Indication: DEPRESSION
     Dosage: 2 PILLS ONCE DAILY TAKEN BY MOUTH
     Route: 048
  4. ABILIFY [Suspect]
     Indication: PARANOIA
     Dosage: 2 PILLS ONCE DAILY TAKEN BY MOUTH
     Route: 048

REACTIONS (7)
  - Type 2 diabetes mellitus [None]
  - Balance disorder [None]
  - Headache [None]
  - Derealisation [None]
  - Food craving [None]
  - Drug ineffective [None]
  - Product quality issue [None]
